FAERS Safety Report 25024110 (Version 1)
Quarter: 2025Q1

REPORT INFORMATION
  Report Type: Report from Study
  Country: CA (occurrence: CA)
  Receive Date: 20250228
  Receipt Date: 20250228
  Transmission Date: 20250409
  Serious: Yes (Other)
  Sender: TAKEDA
  Company Number: CA-TAKEDA-2025TUS019941

PATIENT
  Age: 0 Year

DRUGS (7)
  1. VEDOLIZUMAB [Suspect]
     Active Substance: VEDOLIZUMAB
     Indication: Colitis ulcerative
  2. PREDNISONE [Concomitant]
     Active Substance: PREDNISONE
  3. SULFASALAZINE [Concomitant]
     Active Substance: SULFASALAZINE
     Dosage: UNK UNK, QD
  4. ABILIFY [Concomitant]
     Active Substance: ARIPIPRAZOLE
  5. QUETIAPINE [Concomitant]
     Active Substance: QUETIAPINE
  6. VITAMIN D [Concomitant]
     Active Substance: VITAMIN D NOS
  7. OMEGA 3 [Concomitant]
     Active Substance: CAPSAICIN

REACTIONS (2)
  - Premature baby [Recovered/Resolved]
  - Foetal exposure during pregnancy [Unknown]

NARRATIVE: CASE EVENT DATE: 20250103
